FAERS Safety Report 6139927-1 (Version None)
Quarter: 2009Q1

REPORT INFORMATION
  Report Type: 
  Country: None (occurrence: None)
  Receive Date: 20090324
  Receipt Date: 20090316
  Transmission Date: 20090719
  Serious: Yes (Death)
  Sender: FDA-Public Use
  Company Number: GXKR2009GB03366

PATIENT
  Age: 38 Year
  Sex: Female

DRUGS (7)
  1. PAROXETINE HCL [Suspect]
     Indication: ANXIETY
     Dosage: 20 MG, QD, ORAL; 10 MG, QD, ORAL
     Route: 048
     Dates: start: 20020101, end: 20060101
  2. PAROXETINE HCL [Suspect]
     Indication: ANXIETY
     Dosage: 20 MG, QD, ORAL; 10 MG, QD, ORAL
     Route: 048
     Dates: start: 20060101
  3. CO-AMOXICLAV (AMOXICILLIN, CLAVULANATE POTASSIUM) [Concomitant]
  4. CO-DYDRAMOL (DIHYDROCODEINE BITARTRATE, PARACETAMOL) [Concomitant]
  5. PREDNISOLONE [Concomitant]
  6. PANTOPRAZOLE SODIUM [Concomitant]
  7. QVAR [Concomitant]

REACTIONS (4)
  - ARRHYTHMIA [None]
  - ARTERIOSPASM CORONARY [None]
  - PANIC ATTACK [None]
  - WITHDRAWAL SYNDROME [None]
